FAERS Safety Report 6675527-2 (Version None)
Quarter: 2010Q2

REPORT INFORMATION
  Report Type: 
  Country: None (occurrence: None)
  Receive Date: 20100409
  Receipt Date: 20100405
  Transmission Date: 20101027
  Serious: Yes (Hospitalization)
  Sender: FDA-Public Use
  Company Number: TR-ELI_LILLY_AND_COMPANY-TR201004001411

PATIENT
  Age: 73 Year
  Sex: Male

DRUGS (4)
  1. HUMALOG [Suspect]
     Indication: DIABETES MELLITUS
     Dosage: 18 IU, EACH MORNING
     Route: 058
     Dates: start: 20090101
  2. HUMALOG [Suspect]
     Dosage: 18 IU, OTHER
     Route: 058
     Dates: start: 20090101
  3. HUMALOG [Suspect]
     Dosage: 18 IU, EACH EVENING
     Route: 058
     Dates: start: 20090101
  4. INSULIN GLARGINE [Concomitant]
     Dosage: 24 IU, DAILY (1/D)
     Route: 058

REACTIONS (1)
  - BLOOD GLUCOSE INCREASED [None]
